FAERS Safety Report 7658216-7 (Version None)
Quarter: 2011Q3

REPORT INFORMATION
  Report Type: 
  Country: None (occurrence: None)
  Receive Date: 20110805
  Receipt Date: 20110729
  Transmission Date: 20111222
  Serious: Yes (Hospitalization)
  Sender: FDA-Public Use
  Company Number: US-JNJFOC-20110800469

PATIENT
  Age: 86 Year
  Sex: Female

DRUGS (8)
  1. TYLENOL-500 [Suspect]
     Route: 048
  2. NEXIUM [Concomitant]
     Indication: DYSPEPSIA
  3. METOPROLOL TARTRATE [Concomitant]
     Indication: HYPERTENSION
  4. TYLENOL-500 [Suspect]
     Indication: ARTHRITIS
     Dosage: 1300 MG 2-3 TIMES A DAY
     Route: 048
  5. LISINOPRIL [Concomitant]
     Indication: BLOOD CHOLESTEROL INCREASED
  6. FLEX-A-MIN [Concomitant]
     Indication: VITAMIN SUPPLEMENTATION
  7. CENTRUM SILVER [Concomitant]
     Indication: VITAMIN SUPPLEMENTATION
  8. CALTRATE D [Concomitant]
     Indication: VITAMIN SUPPLEMENTATION

REACTIONS (1)
  - ABDOMINAL PAIN UPPER [None]
